FAERS Safety Report 5128069-X (Version None)
Quarter: 2006Q4

REPORT INFORMATION
  Report Type: 
  Country: None (occurrence: None)
  Receive Date: 20061010
  Receipt Date: 20060926
  Transmission Date: 20070319
  Serious: Yes (Life-Threatening, Hospitalization)
  Sender: FDA-Public Use
  Company Number: 148180ISR

PATIENT
  Age: 15 Year
  Sex: Female

DRUGS (4)
  1. PREDNISOLONE [Suspect]
  2. MINOCYCLINE HYDROCHLORIDE [Suspect]
  3. PYRIDOSTIGMINE BROMIDE [Suspect]
     Dosage: 360 MG (90 MG 4 IN 1 D) ORAL
     Route: 048
     Dates: start: 20050920, end: 20051101
  4. OMEPRAZOLE [Suspect]

REACTIONS (1)
  - TOXIC EPIDERMAL NECROLYSIS [None]
